FAERS Safety Report 23213067 (Version 1)
Quarter: 2023Q4

REPORT INFORMATION
  Report Type: Spontaneous
  Country: ES (occurrence: ES)
  Receive Date: 20231121
  Receipt Date: 20231121
  Transmission Date: 20240110
  Serious: Yes (Hospitalization)
  Sender: FDA-Public Use
  Company Number: None

PATIENT
  Age: 54 Year
  Sex: Female

DRUGS (17)
  1. CARBOPLATIN [Suspect]
     Active Substance: CARBOPLATIN
     Indication: Lung adenocarcinoma stage IV
     Dosage: 750.0 MG EVERY 21 DAYS, CARBOPLATINO (2323A), THERAPY END DATE : NASK
     Dates: start: 20230327
  2. PEMETREXED [Suspect]
     Active Substance: PEMETREXED
     Indication: Lung adenocarcinoma stage IV
     Dosage: 990.0 MG EVERY 21 DAYS, PEMETREXED (2944A), THERAPY END DATE : NASK
     Dates: start: 20230327
  3. CLOTRIMAZOL CANESMED [Concomitant]
     Indication: Fungal skin infection
     Dosage: 2 DOSAGE FORMS DAILY; 1.0 APPLIC C/12 H, EFG, 1 TUBE OF 30 G, FORM STRENGTH : 10 MG/G
     Dates: start: 20201215
  4. FERPLEX [Concomitant]
     Indication: Headache
     Dosage: 800.0 MG A-DECE, 20 DRINKABLE VIALS OF 15 ML, FORM STRENGTH : 40 MG
     Dates: start: 20110708
  5. ZOLICO [Concomitant]
     Indication: Lung adenocarcinoma stage IV
     Dosage: 0.4 MG A-DE, 28 TABLETS, FORM STRENGTH : 400 MCG
     Dates: start: 20230323
  6. IBUPROFENO VIATRIS [Concomitant]
     Indication: Headache
     Dosage: 1200 MILLIGRAM DAILY; 600.0 MG C/12 H, EFG, 40 TABLETS, FORM STRENGTH : 600 MG
     Dates: start: 20220919
  7. SALBUTAMOL ALDO UNION [Concomitant]
     Indication: Bronchitis
     Dosage: 300 MICROGRAM DAILY; 100.0 MCG EVERY 8 HOURS, 1 INHALER OF 200 DOSES, FORM STRENGTH : 100 MICROGRAMS
     Dates: start: 20220826
  8. TRAZODONE HYDROCHLORIDE [Concomitant]
     Active Substance: TRAZODONE HYDROCHLORIDE
     Indication: Grief reaction
     Dosage: 100 MILLIGRAM DAILY; 100.0 MG Q/24 H NOC, EFG, 60 TABLETS (ALUMINUM/PVDC-PE BLISTER), FORM STRENGTH:
     Dates: start: 20110302
  9. PEMBROLIZUMAB [Concomitant]
     Active Substance: PEMBROLIZUMAB
     Indication: Lung adenocarcinoma stage IV
     Dosage: 200.0 MG EVERY 21 DAYS, PEMBROLIZUMAB (9069A)
     Dates: start: 20230327
  10. OMEPRAZOLE VIATRIS [Concomitant]
     Indication: Product used for unknown indication
     Dosage: 20.0 MG DECE, EFG, 56 CAPSULES (BOTTLE), FORM STRENGTH :  20 MG
     Dates: start: 20160712
  11. GABAPENTINA KERN PHARMA [Concomitant]
     Indication: Headache
     Dosage: 300.0 MG A-CE, EFG, 90 CAPSULES, FORM STRENGTH : 300 MG
     Dates: start: 20110621
  12. PREDNISONE [Concomitant]
     Active Substance: PREDNISONE
     Indication: Allergic respiratory disease
     Dosage: 10.0 MG DE, EFG, 30 TABLETS, FORM STRENGTH : 30 MG
     Dates: start: 20230214
  13. FEXOFENADINE OPELLA [Concomitant]
     Indication: Asthma
     Dosage: 180.0 MG DE, 20 TABLETS, FORM STRENGTH : 180 MG
     Dates: start: 20110726
  14. TRYPTIZOL [Concomitant]
     Active Substance: AMITRIPTYLINE HYDROCHLORIDE
     Indication: Headache
     Dosage: 50 MILLIGRAM DAILY; 50.0 MG C/24 H NOC, 30 TABLETS, FORM STRENGTH : 50 MG
     Dates: start: 20130221
  15. CALCIFEDIOL [Concomitant]
     Active Substance: CALCIFEDIOL
     Indication: Lung adenocarcinoma stage IV
     Dosage: 0.266 MG EVERY 14 DAYS, 10 CAPSULES (PVC/PVDC-ALUMINUM BLISTER), FORM STRENGTH : 0.266 MG
     Dates: start: 20220423
  16. SERETIDE [Concomitant]
     Active Substance: FLUTICASONE PROPIONATE\SALMETEROL XINAFOATE
     Indication: Asthma
     Dosage: 2 DOSAGE FORMS DAILY; 1.0 PUFF W/12 HRS, FORM STRENGTH : 50 MICROGRAMS/500 MICROGRAMS/INHALATION, 1
     Dates: start: 20151029
  17. NOLOTIL [Concomitant]
     Indication: Arthralgia
     Dosage: 575.0 MG DECOME, 20 CAPSULES, FORM STRENGTH : 575 MG
     Dates: start: 20100225

REACTIONS (3)
  - Mucosal inflammation [Recovered/Resolved]
  - Diarrhoea [Recovered/Resolved]
  - Pancytopenia [Recovered/Resolved]

NARRATIVE: CASE EVENT DATE: 20230407
